FAERS Safety Report 15218078 (Version 1)
Quarter: 2018Q3

REPORT INFORMATION
  Report Type: Report from Study
  Country: FR (occurrence: FR)
  Receive Date: 20180730
  Receipt Date: 20180730
  Transmission Date: 20181010
  Serious: Yes (Other)
  Sender: FDA-Public Use
  Company Number: FR-BRISTOL-MYERS SQUIBB COMPANY-BMS-2018-069910

PATIENT
  Age: 45 Year
  Sex: Female
  Weight: 75 kg

DRUGS (1)
  1. NIVOLUMAB [Suspect]
     Active Substance: NIVOLUMAB
     Indication: RENAL CELL CARCINOMA
     Dosage: 200 MG, UNK
     Route: 042
     Dates: start: 20170131, end: 20180709

REACTIONS (1)
  - Lobular breast carcinoma in situ [Not Recovered/Not Resolved]

NARRATIVE: CASE EVENT DATE: 20180720
